FAERS Safety Report 14863270 (Version 1)
Quarter: 2018Q2

REPORT INFORMATION
  Report Type: Spontaneous
  Country: US (occurrence: US)
  Receive Date: 20180508
  Receipt Date: 20180508
  Transmission Date: 20180711
  Serious: No
  Sender: FDA-Public Use
  Company Number: US-ALKERMES INC.-ALK-2017-001915

PATIENT
  Age: 55 Year
  Sex: Male
  Weight: 78.91 kg

DRUGS (2)
  1. VIVITROL [Suspect]
     Active Substance: NALTREXONE
     Indication: DRUG DEPENDENCE
     Dosage: 380 MG, QMO
     Route: 030
     Dates: start: 20170508
  2. METHADONE [Concomitant]
     Active Substance: METHADONE HYDROCHLORIDE
     Indication: PRODUCT USED FOR UNKNOWN INDICATION

REACTIONS (16)
  - Anxiety [Recovered/Resolved]
  - Musculoskeletal chest pain [Recovered/Resolved]
  - Burning sensation [Recovered/Resolved]
  - Headache [Recovered/Resolved]
  - Drug withdrawal syndrome [Recovered/Resolved]
  - Drug dose omission [Not Recovered/Not Resolved]
  - Lacrimation increased [Recovered/Resolved]
  - Dizziness [Recovered/Resolved]
  - Pain in extremity [Recovered/Resolved]
  - Insomnia [Recovered/Resolved]
  - Abdominal distension [Recovering/Resolving]
  - Nausea [Recovered/Resolved]
  - Renal pain [Recovered/Resolved]
  - Visual impairment [Not Recovered/Not Resolved]
  - Photopsia [Recovered/Resolved]
  - Sneezing [Recovering/Resolving]

NARRATIVE: CASE EVENT DATE: 20170508
